FAERS Safety Report 8728449 (Version 2)
Quarter: 2012Q4

REPORT INFORMATION
  Report Type: 
  Country: US (occurrence: US)
  Receive Date: 20120817
  Receipt Date: 20121008
  Transmission Date: 20130627
  Serious: Yes (Death, Hospitalization)
  Sender: FDA-Public Use
  Company Number: US-AMGEN-USASP2012051309

PATIENT
  Age: 82 Year
  Sex: Female

DRUGS (4)
  1. PROCRIT [Suspect]
     Indication: ANAEMIA
     Dosage: 20000 IU, one time dose
     Route: 058
     Dates: start: 20100522, end: 20100522
  2. LEVAQUIN [Suspect]
     Dosage: UNK
     Dates: start: 2008
  3. ALBUMIN [Suspect]
     Dosage: UNK
     Dates: start: 2010
  4. LASIX                              /00032601/ [Suspect]
     Dosage: UNK
     Dates: start: 2010

REACTIONS (2)
  - Pneumonia [Fatal]
  - Adverse event [Unknown]
